FAERS Safety Report 16564649 (Version 1)
Quarter: 2019Q3

REPORT INFORMATION
  Report Type: Spontaneous
  Country: RU (occurrence: RU)
  Receive Date: 20190712
  Receipt Date: 20190712
  Transmission Date: 20191004
  Serious: Yes (Life-Threatening, Other)
  Sender: FDA-Public Use
  Company Number: RU-SA-2019SA188503

PATIENT
  Age: 77 Year
  Sex: Male
  Weight: 80 kg

DRUGS (8)
  1. CLEXANE [Suspect]
     Active Substance: ENOXAPARIN SODIUM
     Indication: MYOCARDIAL INFARCTION
  2. ALTEPLASE. [Suspect]
     Active Substance: ALTEPLASE
     Indication: ELECTROCARDIOGRAM ST SEGMENT ELEVATION
     Dosage: UNK UNK, UNK
     Route: 042
     Dates: start: 20190513
  3. BISOPROLOL [Concomitant]
     Active Substance: BISOPROLOL
     Dosage: UNK UNK, UNK
     Route: 065
  4. CLOPIDOGREL BISULFATE. [Suspect]
     Active Substance: CLOPIDOGREL BISULFATE
     Indication: ACUTE MYOCARDIAL INFARCTION
     Dosage: UNK
     Dates: start: 20190513
  5. ALTEPLASE. [Suspect]
     Active Substance: ALTEPLASE
     Indication: MYOCARDIAL INFARCTION
  6. ATORIS [Concomitant]
     Active Substance: ATORVASTATIN CALCIUM
     Indication: CORONARY ARTERY DISEASE
     Dosage: UNK UNK, UNK
     Route: 048
  7. CLOPIDOGREL BISULFATE. [Suspect]
     Active Substance: CLOPIDOGREL BISULFATE
     Indication: MYOCARDIAL INFARCTION
  8. CLEXANE [Suspect]
     Active Substance: ENOXAPARIN SODIUM
     Indication: ELECTROCARDIOGRAM ST SEGMENT ELEVATION
     Dosage: UNK
     Route: 058
     Dates: start: 20190513

REACTIONS (2)
  - Acute kidney injury [Not Recovered/Not Resolved]
  - Haemorrhagic stroke [Not Recovered/Not Resolved]

NARRATIVE: CASE EVENT DATE: 20190514
